FAERS Safety Report 4880993-9 (Version None)
Quarter: 2005Q4

REPORT INFORMATION
  Report Type: 
  Country: None (occurrence: None)
  Receive Date: 20051223
  Receipt Date: 20051111
  Transmission Date: 20060501
  Serious: Yes (Hospitalization)
  Sender: FDA-Public Use
  Company Number: 05P-163-0317237-00

PATIENT
  Age: 53 Year
  Sex: Female
  Weight: 90.9 kg

DRUGS (4)
  1. HUMIRA [Suspect]
     Indication: RHEUMATOID ARTHRITIS
     Dosage: 40 MG, 1 IN 1 WK, SUBCUTANEOUS
     Route: 058
     Dates: start: 20051002
  2. ETODOLAC [Concomitant]
  3. MULTIVITAMIN [Concomitant]
  4. CARISOPRODOL [Concomitant]

REACTIONS (4)
  - CARDIAC ENZYMES INCREASED [None]
  - CARDIAC MURMUR [None]
  - OEDEMA PERIPHERAL [None]
  - TACHYCARDIA [None]
